FAERS Safety Report 18472938 (Version 1)
Quarter: 2020Q4

REPORT INFORMATION
  Report Type: Spontaneous
  Country: US (occurrence: US)
  Receive Date: 20201104
  Receipt Date: 20201104
  Transmission Date: 20210114
  Serious: Yes (Other)
  Sender: FDA-Public Use
  Company Number: None

PATIENT
  Age: 45 Year
  Sex: Male
  Weight: 76.2 kg

DRUGS (45)
  1. BIVALRUDIN [Concomitant]
  2. CEFEPIME [Concomitant]
     Active Substance: CEFEPIME HYDROCHLORIDE
  3. LACOSAMIDE. [Concomitant]
     Active Substance: LACOSAMIDE
  4. PREMIX TITRATABLE DILUENT [Concomitant]
  5. TICAGRELOR. [Concomitant]
     Active Substance: TICAGRELOR
  6. AMPICILLIN/SULBACTAM [Concomitant]
     Active Substance: AMPICILLIN SODIUM\SULBACTAM SODIUM
  7. HEPARIN [Concomitant]
     Active Substance: HEPARIN SODIUM
  8. MEPERIDINE [Concomitant]
     Active Substance: MEPERIDINE
  9. SOD BICARB [Concomitant]
  10. ATORVASTATIN [Concomitant]
     Active Substance: ATORVASTATIN
  11. FUROSEMIDE. [Concomitant]
     Active Substance: FUROSEMIDE
  12. LIDOCAINE 2% [Concomitant]
     Active Substance: LIDOCAINE
  13. MUPIROCIN 2% [Concomitant]
     Active Substance: MUPIROCIN
  14. POLYETHYLENE GLYC (MIRALAX) [Concomitant]
  15. POTASSIUM CHL [Concomitant]
  16. SODIUM CHLORIDE 0.9% [Concomitant]
     Active Substance: SODIUM CHLORIDE
  17. CISATRACURIUM. [Concomitant]
     Active Substance: CISATRACURIUM
  18. EPTIFIBATIDE. [Concomitant]
     Active Substance: EPTIFIBATIDE
  19. FENTANYL. [Concomitant]
     Active Substance: FENTANYL
  20. NS EXCEL BAG [Concomitant]
  21. PHENYLEPHRINE [Concomitant]
     Active Substance: PHENYLEPHRINE HYDROCHLORIDE
  22. CHLORHEXIDINE 0.12% RINSE [Suspect]
     Active Substance: CHLORHEXIDINE
     Indication: ANTIBIOTIC PROPHYLAXIS
     Route: 002
     Dates: start: 20201008, end: 20201028
  23. ASPIRIN. [Concomitant]
     Active Substance: ASPIRIN
  24. ATROPINE. [Concomitant]
     Active Substance: ATROPINE
  25. CEFTRIAXONE. [Concomitant]
     Active Substance: CEFTRIAXONE
  26. FAMOTIDINE. [Concomitant]
     Active Substance: FAMOTIDINE
  27. INSULIN LISPRO (HUMALOG) [Concomitant]
  28. LEVETIRACETAM. [Concomitant]
     Active Substance: LEVETIRACETAM
  29. MAGNESIUM CITRATE. [Concomitant]
     Active Substance: MAGNESIUM CITRATE
  30. PNEUMOCOCCAL 23-VALENT VACCINE (PNEUMOVAX 23) [Concomitant]
  31. CANGRELOR [Concomitant]
     Active Substance: CANGRELOR
  32. INSULIN REGULAR [Concomitant]
     Active Substance: INSULIN NOS
  33. NOREPINEPHRINE. [Concomitant]
     Active Substance: NOREPINEPHRINE
  34. ACETAMINOPHEN. [Concomitant]
     Active Substance: ACETAMINOPHEN
  35. BISACODYL. [Concomitant]
     Active Substance: BISACODYL
  36. D10W [Concomitant]
     Active Substance: DEXTROSE\WATER
  37. DOCUSATE SOD [Concomitant]
  38. METOPROLOL. [Concomitant]
     Active Substance: METOPROLOL
  39. CALCIUM CHLORIDE 10% [Concomitant]
     Active Substance: CALCIUM CHLORIDE
  40. DEXTROSE, UNSPECIFIED FORM. [Concomitant]
     Active Substance: DEXTROSE, UNSPECIFIED FORM
  41. MAGNESIUM SULFATE. [Concomitant]
     Active Substance: MAGNESIUM SULFATE
  42. MIDAZOLAM. [Concomitant]
     Active Substance: MIDAZOLAM
  43. MILRINONE [Concomitant]
     Active Substance: MILRINONE
  44. PROPOFOL. [Concomitant]
     Active Substance: PROPOFOL
  45. SENNA [Concomitant]
     Active Substance: SENNA LEAF\SENNOSIDES\SENNOSIDES A AND B

REACTIONS (5)
  - Product contamination microbial [None]
  - Burkholderia infection [None]
  - Sputum culture positive [None]
  - Recalled product [None]
  - Transmission of an infectious agent via product [None]

NARRATIVE: CASE EVENT DATE: 20201016
